FAERS Safety Report 12268925 (Version 3)
Quarter: 2017Q1

REPORT INFORMATION
  Report Type: Spontaneous
  Country: US (occurrence: US)
  Receive Date: 20160414
  Receipt Date: 20170118
  Transmission Date: 20170428
  Serious: Yes (Hospitalization, Other)
  Sender: FDA-Public Use
  Company Number: US-PFIZER INC-2016203137

PATIENT
  Age: 53 Year
  Sex: Female

DRUGS (27)
  1. CLONIDINE HCL [Concomitant]
     Active Substance: CLONIDINE HYDROCHLORIDE
     Indication: HYPERTENSION
     Dosage: 0.1 MG, AS NEEDED (ONCE A DAY)
     Route: 048
  2. LYRICA [Suspect]
     Active Substance: PREGABALIN
     Indication: PAIN MANAGEMENT
     Dosage: 300 MG, 3X/DAY
     Route: 048
     Dates: start: 20150917
  3. IRON [Concomitant]
     Active Substance: IRON
     Dosage: 1 DF, 2X/DAY
     Route: 048
  4. CLARITIN [Concomitant]
     Active Substance: LORATADINE
     Dosage: 10 MG, 1X/DAY
     Route: 048
  5. TRAMADOL HCL [Concomitant]
     Active Substance: TRAMADOL HYDROCHLORIDE
     Indication: PAIN
     Dosage: 50 MG, AS NEEDED (EVERY 8 HRS PRN )
  6. PROMETHAZINE HCL [Concomitant]
     Active Substance: PROMETHAZINE HYDROCHLORIDE
     Indication: NAUSEA
     Dosage: 25 MG, AS NEEDED (Q 6 HRS)
     Route: 048
     Dates: start: 20140327
  7. METFORMIN HCL [Concomitant]
     Active Substance: METFORMIN HYDROCHLORIDE
     Dosage: 500 MG, 1X/DAY (1 TABLET WITH EVENING MEAL)
     Route: 048
  8. NYSTATIN. [Concomitant]
     Active Substance: NYSTATIN
     Dosage: 5 ML, 2X/DAY (FOR 7 DAYS)
     Route: 048
  9. DULERA [Concomitant]
     Active Substance: FORMOTEROL FUMARATE DIHYDRATE\MOMETASONE FUROATE
     Dosage: 100-5 MCG/ACT AEROSOL, 1 INH INHALATION BID
     Route: 055
     Dates: start: 20131121
  10. LOMOTIL [Concomitant]
     Active Substance: ATROPINE SULFATE\DIPHENOXYLATE HYDROCHLORIDE
     Indication: DIARRHOEA
     Dosage: 1 DF, AS NEEDED (ATROPINE SULFATE-0.025MG, DIPHENOXYLATE HYDROCHLORIDE- 2.5MG)/FOUR TIMES A DAY PRN
     Route: 048
     Dates: start: 20140327
  11. SINGULAIR [Concomitant]
     Active Substance: MONTELUKAST SODIUM
     Dosage: 10 MG, 1X/DAY (IN THE EVENING )
     Route: 048
     Dates: start: 20151015
  12. INVOKANA [Concomitant]
     Active Substance: CANAGLIFLOZIN
     Dosage: 300 MG, 1X/DAY
     Route: 048
     Dates: start: 20160630
  13. VITAMIN D [Concomitant]
     Active Substance: CHOLECALCIFEROL
     Dosage: 4000 IU, 1X/DAY
     Route: 048
  14. OMEPRAZOLE. [Concomitant]
     Active Substance: OMEPRAZOLE
     Dosage: 20 MG, 2X/DAY
     Route: 048
  15. PERCOCET [Concomitant]
     Active Substance: ACETAMINOPHEN\OXYCODONE HYDROCHLORIDE
     Dosage: 1 DF, AS NEEDED BID (OXYCODONE HYDROCHLORIDE-7.5 MG,  PARACETAMOL-325 MG)/ BID
     Route: 048
     Dates: start: 20150527
  16. CRESTOR [Concomitant]
     Active Substance: ROSUVASTATIN CALCIUM
     Dosage: 10 MG, 1X/DAY
     Route: 048
     Dates: start: 20150917
  17. ALBUTEROL SULFATE. [Concomitant]
     Active Substance: ALBUTEROL SULFATE
     Dosage: 3 ML, 3X/DAY (2.5 MG/3ML) 0.083%)
     Dates: start: 20141013
  18. CYCLOBENZAPRINE HCL [Concomitant]
     Active Substance: CYCLOBENZAPRINE HYDROCHLORIDE
     Dosage: 5 MG (QD - TID)
     Route: 048
     Dates: start: 20141125
  19. IBUPROFEN. [Concomitant]
     Active Substance: IBUPROFEN
     Dosage: 800 MG, 3X/DAY
     Route: 048
  20. CYMBALTA [Concomitant]
     Active Substance: DULOXETINE HYDROCHLORIDE
     Dosage: 60 MG, 1X/DAY
     Route: 048
     Dates: start: 20150917
  21. WELLBUTRIN XL [Concomitant]
     Active Substance: BUPROPION HYDROCHLORIDE
     Dosage: 150 MG, 1X/DAY (IN THE MORNING )
     Route: 048
     Dates: start: 20151015
  22. ROSUVASTATIN CALCIUM. [Concomitant]
     Active Substance: ROSUVASTATIN CALCIUM
     Dosage: 10 MG, 1X/DAY
     Route: 048
  23. PHENTERMINE HCL [Concomitant]
     Active Substance: PHENTERMINE HYDROCHLORIDE
     Dosage: 37.5 MG, 1X/DAY
     Route: 048
     Dates: start: 20161021
  24. ALBUTEROL SULFATE HFA [Concomitant]
     Active Substance: ALBUTEROL SULFATE
     Dosage: 2 PUFFS AS NEEDED INHALATION EVERY 4 HRS
     Route: 055
     Dates: start: 20131022
  25. LISINOPRIL-HYDROCHLOROTHIAZIDE [Concomitant]
     Active Substance: HYDROCHLOROTHIAZIDE\LISINOPRIL
     Dosage: 1 DF, 1X/DAY (AM) LISINOPRIL- 20MG, HYDROCHLOROTHIAZIDE- 25MG)
     Route: 048
     Dates: start: 20140918
  26. ESTROVEN [Concomitant]
     Active Substance: DIETARY SUPPLEMENT
     Dosage: UNK
     Route: 048
  27. OXYGEN. [Concomitant]
     Active Substance: OXYGEN
     Dosage: 2 L, 1X/DAY ( QHS)

REACTIONS (7)
  - Prescribed overdose [Unknown]
  - Sepsis [Unknown]
  - Asthma [Unknown]
  - Renal failure [Unknown]
  - Staphylococcal infection [Unknown]
  - Breath sounds abnormal [Unknown]
  - Pneumonia [Unknown]

NARRATIVE: CASE EVENT DATE: 20150917
